FAERS Safety Report 5368028-5 (Version None)
Quarter: 2007Q2

REPORT INFORMATION
  Report Type: 
  Country: None (occurrence: None)
  Receive Date: 20070622
  Receipt Date: 20070611
  Transmission Date: 20071010
  Serious: Yes (Other)
  Sender: FDA-Public Use
  Company Number: US-PFIZER INC-2007048565

PATIENT
  Sex: Male
  Weight: 99.8 kg

DRUGS (1)
  1. CHANTIX [Suspect]
     Indication: EX-SMOKER

REACTIONS (3)
  - BLOOD GLUCOSE INCREASED [None]
  - POLLAKIURIA [None]
  - VISION BLURRED [None]
